FAERS Safety Report 8513594-1 (Version None)
Quarter: 2012Q3

REPORT INFORMATION
  Report Type: 
  Country: None (occurrence: None)
  Receive Date: 20120717
  Receipt Date: 20120713
  Transmission Date: 20120928
  Serious: No
  Sender: FDA-Public Use
  Company Number: US-PFIZER INC-2012169703

PATIENT
  Sex: Male

DRUGS (4)
  1. LYRICA [Suspect]
     Indication: HYPOAESTHESIA
  2. ADVIL [Suspect]
     Indication: PAIN IN EXTREMITY
     Dosage: UNK
  3. LYRICA [Suspect]
     Indication: PAIN IN EXTREMITY
     Dosage: 75 MG, DAILY
     Route: 048
     Dates: end: 20120101
  4. INSULIN [Concomitant]
     Indication: TYPE 2 DIABETES MELLITUS
     Dosage: 40 IU, DAILY

REACTIONS (5)
  - INSOMNIA [None]
  - MUSCULAR WEAKNESS [None]
  - GAIT DISTURBANCE [None]
  - DRUG INEFFECTIVE [None]
  - DIZZINESS [None]
